FAERS Safety Report 22220576 (Version 2)
Quarter: 2023Q2

REPORT INFORMATION
  Report Type: Report from Study
  Country: US (occurrence: US)
  Receive Date: 20230417
  Receipt Date: 20230620
  Transmission Date: 20230721
  Serious: Yes (Hospitalization, Other)
  Sender: FDA-Public Use
  Company Number: US-ABBVIE-4731257

PATIENT
  Age: 70 Year
  Sex: Female
  Weight: 81.646 kg

DRUGS (9)
  1. RINVOQ [Suspect]
     Active Substance: UPADACITINIB
     Indication: Rheumatoid arthritis
     Route: 048
     Dates: start: 2022, end: 2023
  2. RINVOQ [Suspect]
     Active Substance: UPADACITINIB
     Indication: Rheumatoid arthritis
     Route: 048
     Dates: start: 2023
  3. RINVOQ [Suspect]
     Active Substance: UPADACITINIB
     Indication: Rheumatoid arthritis
     Route: 048
     Dates: start: 2021, end: 2022
  4. ESTRADIOL [Concomitant]
     Active Substance: ESTRADIOL
     Indication: Product used for unknown indication
  5. PANTOPRAZOLE [Concomitant]
     Active Substance: PANTOPRAZOLE
     Indication: Product used for unknown indication
  6. PROGESTERONE DCI [Concomitant]
     Indication: Product used for unknown indication
  7. LISINOPRIL [Concomitant]
     Active Substance: LISINOPRIL
     Indication: Product used for unknown indication
  8. HYDROCODONE [Concomitant]
     Active Substance: HYDROCODONE
     Indication: Product used for unknown indication
  9. DULOXETINE [Concomitant]
     Active Substance: DULOXETINE
     Indication: Pain

REACTIONS (10)
  - Pain [Recovered/Resolved]
  - Arthralgia [Unknown]
  - Pain [Unknown]
  - Arthropathy [Recovered/Resolved]
  - Localised infection [Unknown]
  - Nasopharyngitis [Not Recovered/Not Resolved]
  - Unevaluable event [Recovered/Resolved]
  - Swelling [Recovered/Resolved]
  - Osteoarthritis [Unknown]
  - Impaired healing [Recovered/Resolved]

NARRATIVE: CASE EVENT DATE: 20230501
